FAERS Safety Report 4973462-9 (Version None)
Quarter: 2006Q2

REPORT INFORMATION
  Report Type: 
  Country: None (occurrence: None)
  Receive Date: 20060414
  Receipt Date: 20060406
  Transmission Date: 20061013
  Serious: Yes (Life-Threatening)
  Sender: FDA-Public Use
  Company Number: MX-SANOFI-SYNTHELABO-A01200602733

PATIENT
  Age: 38 Year
  Sex: Male
  Weight: 72 kg

DRUGS (1)
  1. PLAVIX [Suspect]
     Indication: DYSLIPIDAEMIA
     Route: 048
     Dates: start: 20060322, end: 20060326

REACTIONS (6)
  - HAEMATURIA [None]
  - PAIN [None]
  - PROTEINURIA [None]
  - PRURITUS [None]
  - SKIN LESION [None]
  - VASCULITIS [None]
